FAERS Safety Report 8720263 (Version 2)
Quarter: 2012Q4

REPORT INFORMATION
  Report Type: 
  Country: DK (occurrence: DK)
  Receive Date: 20120813
  Receipt Date: 20120910
  Transmission Date: 20130627
  Serious: Yes (Other)
  Sender: FDA-Public Use
  Company Number: DK-PFIZER INC-2012170391

PATIENT
  Age: 64 Year

DRUGS (3)
  1. FLUCONAZOLE [Suspect]
     Indication: NAIL INFECTION
     Dosage: UNK
     Dates: start: 20120712
  2. NIFEDIPINE [Concomitant]
     Dosage: UNK
  3. ENALAPRIL [Concomitant]
     Dosage: UNK

REACTIONS (1)
  - Hallucination [Unknown]
